FAERS Safety Report 13553559 (Version 3)
Quarter: 2017Q4

REPORT INFORMATION
  Report Type: Spontaneous
  Country: US (occurrence: US)
  Receive Date: 20170517
  Receipt Date: 20171026
  Transmission Date: 20180320
  Serious: Yes (Congenital Anomaly, Other)
  Sender: FDA-Public Use
  Company Number: PHEH2017US014533

PATIENT
  Sex: Male

DRUGS (1)
  1. ZOFRAN [Suspect]
     Active Substance: ONDANSETRON HYDROCHLORIDE
     Indication: FOETAL EXPOSURE DURING PREGNANCY
     Route: 064

REACTIONS (25)
  - Atrial septal defect [Unknown]
  - Hypertension neonatal [Recovered/Resolved]
  - Cardiac murmur [Unknown]
  - Tricuspid valve incompetence [Unknown]
  - Rash [Unknown]
  - Pyrexia [Unknown]
  - Cardiac failure congestive [Unknown]
  - Cough [Unknown]
  - Tricuspid valve disease [Unknown]
  - Heart disease congenital [Unknown]
  - Neonatal tachypnoea [Unknown]
  - Rhinorrhoea [Unknown]
  - Pain in extremity [Unknown]
  - Chest pain [Unknown]
  - Left-to-right cardiac shunt [Unknown]
  - Failure to thrive [Unknown]
  - Foetal exposure during pregnancy [Unknown]
  - Cardiomegaly [Unknown]
  - Poor weight gain neonatal [Unknown]
  - Left atrial dilatation [Unknown]
  - Injury [Unknown]
  - Hyperhidrosis [Unknown]
  - Ventricular septal defect [Unknown]
  - Pleural effusion [Unknown]
  - Left ventricular dilatation [Unknown]
